FAERS Safety Report 4686858-X (Version None)
Quarter: 2005Q2

REPORT INFORMATION
  Report Type: 
  Country: None (occurrence: None)
  Receive Date: 20050608
  Receipt Date: 20050523
  Transmission Date: 20051028
  Serious: Yes (Hospitalization)
  Sender: FDA-Public Use
  Company Number: 310001E05JPN

PATIENT
  Age: 38 Year
  Sex: Male

DRUGS (4)
  1. GONAL-F [Suspect]
     Indication: SECONDARY HYPOGONADISM
     Dosage: 150 IU, 3 IN 1 WEEKS, SUBCUTANEOUS
     Route: 058
     Dates: start: 20040124, end: 20050520
  2. PROFASI HP [Suspect]
     Indication: SECONDARY HYPOGONADISM
     Dosage: 3000 IU, 3 IN 1 WEEKS, SUBCUTANEOUS
     Route: 058
     Dates: start: 20040124, end: 20050520
  3. LEVOTHYROXINE SODIUM [Concomitant]
  4. HYDROCORTISONE [Concomitant]

REACTIONS (9)
  - DEPRESSION [None]
  - DYSLALIA [None]
  - DYSPHAGIA [None]
  - NEUROLEPTIC MALIGNANT SYNDROME [None]
  - PNEUMONIA [None]
  - SEDATION [None]
  - SEROTONIN SYNDROME [None]
  - SUICIDAL IDEATION [None]
  - VOMITING [None]
